FAERS Safety Report 7888027-9 (Version None)
Quarter: 2011Q4

REPORT INFORMATION
  Report Type: 
  Country: None (occurrence: None)
  Receive Date: 20111103
  Receipt Date: 20111024
  Transmission Date: 20120403
  Serious: Yes (Other)
  Sender: FDA-Public Use
  Company Number: US-RB-029219-11

PATIENT
  Age: 83 Year
  Sex: Female

DRUGS (1)
  1. MUCINEX DM [Suspect]
     Indication: PRODUCT USED FOR UNKNOWN INDICATION
     Dosage: 1 1200 MG TABLET 2X, 1 PER DAY, LAST THURS, FRI AND SAT
     Route: 048

REACTIONS (1)
  - HALLUCINATION [None]
